FAERS Safety Report 5261502-1 (Version None)
Quarter: 2007Q1

REPORT INFORMATION
  Report Type: 
  Country: None (occurrence: None)
  Receive Date: 20070308
  Receipt Date: 20070221
  Transmission Date: 20070707
  Serious: Yes (Hospitalization)
  Sender: FDA-Public Use
  Company Number: 26412

PATIENT
  Age: 60 Year
  Sex: Male
  Weight: 122 kg

DRUGS (14)
  1. NIASPAN [Suspect]
     Dosage: 2000 MG PO
     Route: 048
     Dates: start: 20070129
  2. ATENOLOL [Concomitant]
  3. CARBOXYMETHYL CELLULOSE NA [Concomitant]
  4. BUPROPRION HCL [Concomitant]
  5. COAL TAR SHAMPOO [Concomitant]
  6. FLUOCINOLONE ACETONIDE [Concomitant]
  7. HYDROCHLOROTHIAZIDE [Concomitant]
  8. KETOCONAZOLE [Concomitant]
  9. SYNTHROID [Concomitant]
  10. LORATADINE [Concomitant]
  11. OMEPRAZOLE [Concomitant]
  12. SERTRALINE HCL [Concomitant]
  13. VARDENAFIL HCL [Concomitant]
  14. ASPIRIN [Concomitant]

REACTIONS (4)
  - CHEST PAIN [None]
  - CORONARY ARTERY DISEASE [None]
  - DYSPNOEA [None]
  - HYPERHIDROSIS [None]
